FAERS Safety Report 5705839-8 (Version None)
Quarter: 2008Q2

REPORT INFORMATION
  Report Type: 
  Country: None (occurrence: None)
  Receive Date: 20080415
  Receipt Date: 20080407
  Transmission Date: 20081010
  Serious: Yes (Other)
  Sender: FDA-Public Use
  Company Number: US-ASTRAZENECA-2008UW05808

PATIENT
  Age: 74 Year
  Sex: Male

DRUGS (6)
  1. CRESTOR [Suspect]
     Dosage: 1/2 OF 40 MG
     Route: 048
     Dates: start: 20070101
  2. NIASPAN [Concomitant]
  3. LASIX [Concomitant]
  4. ATENOLOL [Concomitant]
  5. FLOMAX [Concomitant]
  6. OMEPRAZOLE [Concomitant]

REACTIONS (3)
  - FAECES DISCOLOURED [None]
  - HAEMATEMESIS [None]
  - OESOPHAGEAL CARCINOMA [None]
